FAERS Safety Report 4781273-2 (Version None)
Quarter: 2005Q3

REPORT INFORMATION
  Report Type: 
  Country: None (occurrence: None)
  Receive Date: 20050928
  Receipt Date: 20050920
  Transmission Date: 20060218
  Serious: Yes (Other)
  Sender: FDA-Public Use
  Company Number: IT-GLAXOSMITHKLINE-B0395170A

PATIENT
  Sex: Female

DRUGS (1)
  1. SALMETEROL-G [Suspect]
     Indication: ASTHMA
     Route: 055

REACTIONS (3)
  - CARDIOMEGALY [None]
  - COMA [None]
  - HYPERCAPNIA [None]
